FAERS Safety Report 15430440 (Version 2)
Quarter: 2018Q4

REPORT INFORMATION
  Report Type: Report from Study
  Country: US (occurrence: US)
  Receive Date: 20180926
  Receipt Date: 20181006
  Transmission Date: 20190204
  Serious: Yes (Hospitalization, Other)
  Sender: FDA-Public Use
  Company Number: US-TEVA-2018-US-957397

PATIENT
  Age: 5 Month
  Sex: Female

DRUGS (12)
  1. METHOTREXATE. [Suspect]
     Active Substance: METHOTREXATE
     Indication: ACUTE LYMPHOCYTIC LEUKAEMIA
     Route: 037
  2. ASPARAGINASE [Suspect]
     Active Substance: ASPARAGINASE
     Indication: ACUTE LYMPHOCYTIC LEUKAEMIA
     Route: 065
  3. METHYLPREDNISOLONE. [Suspect]
     Active Substance: METHYLPREDNISOLONE
     Indication: ACUTE LYMPHOCYTIC LEUKAEMIA
     Route: 065
  4. VINCRISTINE [Suspect]
     Active Substance: VINCRISTINE
     Indication: ACUTE LYMPHOCYTIC LEUKAEMIA
     Route: 065
  5. ARA-C [Suspect]
     Active Substance: CYTARABINE
     Indication: ACUTE LYMPHOCYTIC LEUKAEMIA
     Route: 065
  6. HYDROCORTISONE. [Suspect]
     Active Substance: HYDROCORTISONE
     Indication: ACUTE LYMPHOCYTIC LEUKAEMIA
     Route: 037
  7. METHOTREXATE. [Suspect]
     Active Substance: METHOTREXATE
     Indication: ACUTE LYMPHOCYTIC LEUKAEMIA
     Route: 042
  8. ETOPOSIDE. [Suspect]
     Active Substance: ETOPOSIDE
     Indication: ACUTE LYMPHOCYTIC LEUKAEMIA
     Route: 065
  9. ARA-C [Suspect]
     Active Substance: CYTARABINE
     Indication: ACUTE LYMPHOCYTIC LEUKAEMIA
     Route: 037
  10. DAUNORUBICIN [Suspect]
     Active Substance: DAUNORUBICIN
     Indication: ACUTE LYMPHOCYTIC LEUKAEMIA
     Route: 065
  11. CYCLOPHOSPHAMIDE. [Suspect]
     Active Substance: CYCLOPHOSPHAMIDE
     Indication: ACUTE LYMPHOCYTIC LEUKAEMIA
     Route: 065
  12. LESTAURTINIB [Suspect]
     Active Substance: LESTAURTINIB
     Indication: ACUTE LYMPHOCYTIC LEUKAEMIA
     Route: 065

REACTIONS (25)
  - Rash [Recovered/Resolved]
  - Hyperkeratosis [Recovered/Resolved]
  - Staphylococcal sepsis [Recovered/Resolved]
  - Erythema multiforme [Recovered/Resolved]
  - Klebsiella infection [Recovered/Resolved]
  - Clostridium difficile colitis [Recovered/Resolved]
  - Staphylococcal infection [Recovered/Resolved]
  - Enterococcal infection [Recovered/Resolved]
  - Skin necrosis [Recovered/Resolved]
  - Feeding intolerance [Recovered/Resolved]
  - Vomiting [Recovered/Resolved]
  - Corona virus infection [Recovered/Resolved]
  - Bronchiolitis [Recovered/Resolved]
  - Graft versus host disease [Recovered/Resolved]
  - Dermatitis exfoliative generalised [Recovered/Resolved]
  - Vascular device infection [Recovered/Resolved]
  - Hypertension [Recovered/Resolved]
  - Dermatitis [Recovered/Resolved]
  - Conjunctivitis [Recovered/Resolved]
  - Febrile neutropenia [Recovered/Resolved]
  - Pulmonary oedema [Recovered/Resolved]
  - Immune system disorder [Recovered/Resolved]
  - Septic shock [Recovered/Resolved]
  - Candida infection [Recovered/Resolved]
  - Otitis externa [Recovered/Resolved]
